FAERS Safety Report 5126818-8 (Version None)
Quarter: 2006Q4

REPORT INFORMATION
  Report Type: 
  Country: None (occurrence: None)
  Receive Date: 20061013
  Receipt Date: 20051227
  Transmission Date: 20070319
  Serious: Yes (Hospitalization, Disabling)
  Sender: FDA-Public Use
  Company Number: US-ROCHE-429952

PATIENT
  Age: 18 Year
  Sex: Male
  Weight: 64.4 kg

DRUGS (2)
  1. ACCUTANE [Suspect]
     Indication: ACNE
     Dosage: PRESCRIPTION - 40MG AND 20MG - T0TAL 60MG PER DAY
     Route: 048
     Dates: start: 19970616
  2. ACCUTANE [Suspect]
     Route: 048
     Dates: start: 19971126, end: 19980115

REACTIONS (32)
  - ABDOMINAL STRANGULATED HERNIA [None]
  - ANAEMIA [None]
  - ARTHRALGIA [None]
  - BLOOD CREATINE PHOSPHOKINASE INCREASED [None]
  - CHOLANGITIS SCLEROSING [None]
  - COLITIS [None]
  - COLITIS ULCERATIVE [None]
  - DRUG ABUSER [None]
  - DYSPEPSIA [None]
  - DYSPNOEA [None]
  - EATING DISORDER [None]
  - EMOTIONAL DISTRESS [None]
  - EPISTAXIS [None]
  - HEPATIC CIRRHOSIS [None]
  - HEPATIC CYST [None]
  - HEPATIC ENZYME INCREASED [None]
  - HEPATITIS B [None]
  - HEPATITIS C [None]
  - HERNIA [None]
  - INFLAMMATORY BOWEL DISEASE [None]
  - INSOMNIA [None]
  - INTESTINAL HAEMORRHAGE [None]
  - IRRITABLE BOWEL SYNDROME [None]
  - LIP DRY [None]
  - OEDEMA PERIPHERAL [None]
  - PANCREATITIS [None]
  - PROCTITIS [None]
  - PRURITUS [None]
  - SEPSIS [None]
  - STRESS [None]
  - WEIGHT DECREASED [None]
  - WOUND DEHISCENCE [None]
